FAERS Safety Report 9604559 (Version 2)
Quarter: 2014Q1

REPORT INFORMATION
  Report Type: Spontaneous
  Country: CA (occurrence: CA)
  Receive Date: 20131008
  Receipt Date: 20140122
  Transmission Date: 20141002
  Serious: Yes (Other)
  Sender: FDA-Public Use
  Company Number: CA-PFIZER INC-2013283597

PATIENT
  Sex: Female

DRUGS (2)
  1. GD-ELETRIPTAN [Suspect]
     Indication: MIGRAINE
     Dosage: 40 MG, AS NEEDED
     Dates: start: 201307, end: 20130927
  2. TEVA-NORFLOXACIN [Suspect]
     Dosage: UNK
     Dates: start: 201307

REACTIONS (9)
  - Urticaria [Recovered/Resolved]
  - Herpes zoster [Recovered/Resolved]
  - Rash [Recovered/Resolved]
  - Swelling face [Recovered/Resolved]
  - Eye swelling [Recovered/Resolved]
  - Pruritus [Recovered/Resolved]
  - Chest pain [Recovered/Resolved]
  - Skin discolouration [Recovered/Resolved]
  - Drug ineffective [Recovered/Resolved]
